FAERS Safety Report 10052041 (Version 3)
Quarter: 2014Q2

REPORT INFORMATION
  Report Type: Spontaneous
  Country: DE (occurrence: DE)
  Receive Date: 20140402
  Receipt Date: 20140516
  Transmission Date: 20141212
  Serious: Yes (Hospitalization)
  Sender: FDA-Public Use
  Company Number: DE-AMGEN-DEUSP2014022641

PATIENT
  Sex: Female

DRUGS (10)
  1. PEGFILGRASTIM [Suspect]
     Indication: B-CELL LYMPHOMA
     Dosage: 6 MG, (1 IN 1 D)
     Route: 058
     Dates: start: 20140320, end: 20140320
  2. PREDNISOLONE [Suspect]
     Indication: B-CELL LYMPHOMA
     Dosage: 100 MG, (1 IN 1 D)
     Route: 048
     Dates: start: 20140318
  3. RITUXIMAB [Concomitant]
     Indication: B-CELL LYMPHOMA
     Dosage: (697.5 MG,1 IN 1 D)
     Route: 042
     Dates: start: 20140317, end: 20140317
  4. DOXORUBICINE                       /00330901/ [Concomitant]
     Indication: B-CELL LYMPHOMA
     Dosage: 93 MG, (1 IN 1 D)
     Route: 042
     Dates: start: 20140318, end: 20140318
  5. VINCRISTINE                        /00078802/ [Concomitant]
     Indication: B-CELL LYMPHOMA
     Dosage: 3.8 MG, (1 IN 1 D)
     Route: 042
     Dates: start: 20140319, end: 20140319
  6. CYCLOPHOSPHAMIDE [Concomitant]
     Indication: B-CELL LYMPHOMA
     Dosage: 1395 MG, QD
     Route: 042
     Dates: start: 20140318, end: 20140318
  7. SULFAMETHOXAZOLE AND TRIMETHOPRIM [Concomitant]
     Indication: INFECTION PROPHYLAXIS
     Dosage: UNK UNK, TWICE A WEEK
     Route: 048
     Dates: start: 20140316
  8. PANTOPRAZOLE SODIUM [Concomitant]
     Indication: PROPHYLAXIS AGAINST GASTROINTESTINAL ULCER
     Dosage: (40 MG, 1 IN 1 D)
     Route: 048
     Dates: start: 20140304
  9. ATENOLOL [Concomitant]
     Indication: HYPERTENSION
     Dosage: 100 MG (50 MG,2 IN 1 D)
     Route: 048
     Dates: start: 20140304
  10. VALSARTAN [Concomitant]
     Indication: HYPERTENSION
     Dosage: 160 MG (80 MG,2 IN 1 D)
     Route: 048
     Dates: start: 20140304

REACTIONS (1)
  - Embolism [Recovered/Resolved]
